FAERS Safety Report 15867626 (Version 1)
Quarter: 2019Q1

REPORT INFORMATION
  Report Type: Spontaneous
  Country: US (occurrence: US)
  Receive Date: 20190125
  Receipt Date: 20190125
  Transmission Date: 20190417
  Serious: No
  Sender: FDA-Public Use
  Company Number: US-PFIZER INC-2019031200

PATIENT
  Age: 55 Year
  Sex: Female
  Weight: 111.13 kg

DRUGS (1)
  1. EUCRISA [Suspect]
     Active Substance: CRISABOROLE
     Dosage: UNK
     Route: 061

REACTIONS (3)
  - Pruritus [Unknown]
  - Acne pustular [Unknown]
  - Discomfort [Unknown]
